FAERS Safety Report 5509341-8 (Version None)
Quarter: 2007Q4

REPORT INFORMATION
  Report Type: 
  Country: None (occurrence: None)
  Receive Date: 20071107
  Receipt Date: 20071026
  Transmission Date: 20080405
  Serious: Yes (Other)
  Sender: FDA-Public Use
  Company Number: US-PFIZER INC-2007091434

PATIENT
  Sex: Male
  Weight: 83.9 kg

DRUGS (4)
  1. CHANTIX [Suspect]
     Indication: SMOKING CESSATION THERAPY
     Dates: start: 20071014, end: 20071018
  2. MOTRIN [Concomitant]
  3. EPZICOM [Concomitant]
  4. VIRAMUNE [Concomitant]

REACTIONS (9)
  - ABNORMAL DREAMS [None]
  - ANGER [None]
  - ASOCIAL BEHAVIOUR [None]
  - FEELING ABNORMAL [None]
  - HOMICIDAL IDEATION [None]
  - NERVOUSNESS [None]
  - PARANOIA [None]
  - SUICIDAL IDEATION [None]
  - TENSION [None]
